FAERS Safety Report 18198148 (Version 19)
Quarter: 2025Q1

REPORT INFORMATION
  Report Type: Spontaneous
  Country: US (occurrence: US)
  Receive Date: 20200826
  Receipt Date: 20250131
  Transmission Date: 20250408
  Serious: Yes (Hospitalization, Disabling, Other)
  Sender: PFIZER
  Company Number: US-PFIZER INC-2020328573

PATIENT
  Age: 77 Year
  Sex: Female

DRUGS (2)
  1. BOSULIF [Suspect]
     Active Substance: BOSUTINIB MONOHYDRATE
     Indication: Philadelphia positive chronic myeloid leukaemia
     Dosage: TAKE 300 MG ONE TIME DAILY
     Route: 048
     Dates: start: 20200219, end: 20240814
  2. BOSULIF [Suspect]
     Active Substance: BOSUTINIB MONOHYDRATE
     Dosage: TAKE 300 MG ONE TIME DAILY
     Route: 048

REACTIONS (9)
  - Diabetic foot infection [Unknown]
  - Postmenopausal haemorrhage [Recovering/Resolving]
  - Weight decreased [Unknown]
  - Gait disturbance [Unknown]
  - Tremor [Not Recovered/Not Resolved]
  - Loss of personal independence in daily activities [Unknown]
  - Pain in extremity [Unknown]
  - Abdominal pain upper [Unknown]
  - Visual impairment [Unknown]

NARRATIVE: CASE EVENT DATE: 20230801
